FAERS Safety Report 5761392-4 (Version None)
Quarter: 2008Q2

REPORT INFORMATION
  Report Type: 
  Country: None (occurrence: None)
  Receive Date: 20080606
  Receipt Date: 20080603
  Transmission Date: 20081010
  Serious: Yes (Other)
  Sender: FDA-Public Use
  Company Number: JP-SANOFI-SYNTHELABO-A01200806205

PATIENT
  Age: 63 Year
  Sex: Male
  Weight: 60 kg

DRUGS (4)
  1. ISOVORIN [Concomitant]
     Dosage: UNK
     Route: 065
  2. FLUOROURACIL [Concomitant]
     Dosage: UNK
     Route: 065
  3. AVASTIN [Suspect]
     Dates: start: 20080425
  4. ELPLAT [Suspect]
     Indication: COLON CANCER
     Dosage: UNK
     Route: 041

REACTIONS (1)
  - SHOCK [None]
